FAERS Safety Report 9935545 (Version 2)
Quarter: 2014Q1

REPORT INFORMATION
  Report Type: Spontaneous
  Country: US (occurrence: US)
  Receive Date: 20140228
  Receipt Date: 20140228
  Transmission Date: 20141002
  Serious: Yes (Disabling)
  Sender: FDA-Public Use
  Company Number: US-GE HEALTHCARE MEDICAL DIAGNOSTICS-OSCN-PR-0809S-0529

PATIENT
  Age: 61 Year
  Sex: Female

DRUGS (4)
  1. OMNISCAN [Suspect]
     Indication: PRODUCT USED FOR UNKNOWN INDICATION
     Route: 042
     Dates: start: 20030319, end: 20030319
  2. OMNISCAN [Suspect]
     Route: 042
     Dates: start: 20050128, end: 20050128
  3. OMNISCAN [Suspect]
     Route: 042
     Dates: start: 20060301, end: 20060301
  4. PROHANCE [Suspect]
     Indication: PRODUCT USED FOR UNKNOWN INDICATION
     Route: 042
     Dates: start: 20040716, end: 20040716

REACTIONS (1)
  - Nephrogenic systemic fibrosis [Not Recovered/Not Resolved]
